FAERS Safety Report 8407243-0 (Version None)
Quarter: 2012Q2

REPORT INFORMATION
  Report Type: 
  Country: None (occurrence: None)
  Receive Date: 20120529
  Receipt Date: 20120514
  Transmission Date: 20120825
  Serious: Yes (Other)
  Sender: FDA-Public Use
  Company Number: 2012AP001452

PATIENT
  Age: 60 Year
  Sex: Female

DRUGS (8)
  1. PERINDOPRIL ERBUMINE [Suspect]
     Indication: HYPERTENSION
     Dosage: 2 MG;QD 4 MG;PO;QD 8 MG;PO;QD
     Route: 048
     Dates: start: 20111001
  2. PERINDOPRIL ERBUMINE [Suspect]
     Indication: HYPERTENSION
     Dosage: 2 MG;QD 4 MG;PO;QD 8 MG;PO;QD
     Route: 048
     Dates: start: 20110401
  3. PERINDOPRIL ERBUMINE [Suspect]
     Indication: HYPERTENSION
     Dosage: 2 MG;QD 4 MG;PO;QD 8 MG;PO;QD
     Route: 048
     Dates: start: 20120411, end: 20120416
  4. ASPIRIN [Concomitant]
  5. BENDROFLUMETHIAZIDE (BENDROFLUMETHIAZIDE) [Concomitant]
  6. VAGIFEM [Concomitant]
  7. IBUPROFEN [Concomitant]
  8. SIMVASTATIN [Concomitant]

REACTIONS (2)
  - MUSCLE SPASMS [None]
  - ARTHRALGIA [None]
